FAERS Safety Report 4922105-9 (Version None)
Quarter: 2006Q1

REPORT INFORMATION
  Report Type: 
  Country: None (occurrence: None)
  Receive Date: 20060224
  Receipt Date: 20060216
  Transmission Date: 20060701
  Serious: Yes (Death)
  Sender: FDA-Public Use
  Company Number: US-JNJFOC-20030900447

PATIENT
  Sex: Female
  Weight: 90.72 kg

DRUGS (12)
  1. INFLIXIMAB [Suspect]
     Indication: RHEUMATOID ARTHRITIS
     Route: 042
  2. LEVOXYL [Concomitant]
  3. FOLIC ACID [Concomitant]
  4. HYZAAR [Concomitant]
  5. HYZAAR [Concomitant]
  6. FUROSEMIDE [Concomitant]
  7. METHOTREXATE [Concomitant]
  8. ALPRAZOLAM [Concomitant]
  9. PERCOGESIC [Concomitant]
  10. PERCOGESIC [Concomitant]
  11. VITAMIN D [Concomitant]
  12. POTASSIUM [Concomitant]

REACTIONS (2)
  - PANCREATIC CARCINOMA [None]
  - SUDDEN DEATH [None]
